FAERS Safety Report 16719476 (Version 4)
Quarter: 2020Q2

REPORT INFORMATION
  Report Type: Report from Study
  Country: US (occurrence: US)
  Receive Date: 20190820
  Receipt Date: 20200629
  Transmission Date: 20200713
  Serious: Yes (Hospitalization)
  Sender: FDA-Public Use
  Company Number: US-BRISTOL-MYERS SQUIBB COMPANY-BMS-2019-080614

PATIENT
  Age: 47 Year
  Sex: Male

DRUGS (11)
  1. BEMPEGALDESLEUKIN [Suspect]
     Active Substance: BEMPEGALDESLEUKIN
     Indication: NON-SMALL CELL LUNG CANCER
     Dosage: 0.006 MILLIGRAM/KILOGRAM, Q3WK
     Route: 042
     Dates: start: 20190716, end: 20190806
  2. ONDANSETRON [Concomitant]
     Active Substance: ONDANSETRON
     Indication: PROPHYLAXIS OF NAUSEA AND VOMITING
     Dosage: UNK
     Route: 065
     Dates: start: 20190709
  3. PROCHLORPERAZINE. [Concomitant]
     Active Substance: PROCHLORPERAZINE
     Indication: PROPHYLAXIS OF NAUSEA AND VOMITING
     Dosage: UNK
     Route: 065
     Dates: start: 20190709
  4. NIVOLUMAB [Suspect]
     Active Substance: NIVOLUMAB
     Indication: NON-SMALL CELL LUNG CANCER
     Dosage: 360 MILLIGRAM, Q3WK
     Route: 042
     Dates: start: 20190716, end: 20190806
  5. OXYCODONE [Concomitant]
     Active Substance: OXYCODONE
     Indication: MUSCULOSKELETAL PAIN
     Dosage: UNK
     Route: 065
     Dates: start: 20190709
  6. SENOKOT [Concomitant]
     Active Substance: SENNOSIDES
     Indication: CONSTIPATION
     Dosage: UNK
     Route: 065
     Dates: start: 20190716, end: 20190806
  7. CARBOPLATIN. [Suspect]
     Active Substance: CARBOPLATIN
     Indication: NON-SMALL CELL LUNG CANCER
     Dosage: 750 MILLIGRAM, Q3WK
     Route: 042
     Dates: start: 20190716, end: 20190806
  8. ABRAXANE [Suspect]
     Active Substance: PACLITAXEL
     Indication: NON-SMALL CELL LUNG CANCER
     Dosage: 1 DOSAGE FORM-5 MG/ML (DAYS 1, 8 AND 15)
     Route: 042
     Dates: start: 20190716, end: 20190806
  9. LIDOCAINE AND PRILOCAINE [Concomitant]
     Active Substance: LIDOCAINE\PRILOCAINE
     Indication: PAIN PROPHYLAXIS
     Dosage: UNK
     Route: 065
     Dates: start: 20180827
  10. DEXAMETHASONE. [Concomitant]
     Active Substance: DEXAMETHASONE
     Indication: PREMEDICATION
     Dosage: UNK
     Route: 065
     Dates: start: 20190709
  11. ROSUVASTATIN. [Concomitant]
     Active Substance: ROSUVASTATIN
     Indication: PRODUCT USED FOR UNKNOWN INDICATION
     Dosage: UNK
     Route: 065
     Dates: start: 201812

REACTIONS (1)
  - Hypotension [Recovered/Resolved]

NARRATIVE: CASE EVENT DATE: 20190812
